FAERS Safety Report 19799169 (Version 2)
Quarter: 2021Q4

REPORT INFORMATION
  Report Type: Report from Study
  Country: GB (occurrence: GB)
  Receive Date: 20210907
  Receipt Date: 20211012
  Transmission Date: 20220303
  Serious: Yes (Other)
  Sender: FDA-Public Use
  Company Number: GB-KYOWAKIRIN-2021BKK014906

PATIENT

DRUGS (1)
  1. POTELIGEO [Suspect]
     Active Substance: MOGAMULIZUMAB-KPKC
     Indication: Cutaneous T-cell lymphoma stage IV
     Dosage: 1 MG/KG WEEKLY IN CYCLE 1 AND AT TWO-WEEK INTERVALS THEREAFTER
     Route: 042

REACTIONS (4)
  - Respiratory tract infection [Unknown]
  - Skin infection [Unknown]
  - Infusion related reaction [Unknown]
  - Rash maculo-papular [Unknown]
